FAERS Safety Report 21264412 (Version 4)
Quarter: 2023Q1

REPORT INFORMATION
  Report Type: Report from Study
  Country: US (occurrence: US)
  Receive Date: 20220829
  Receipt Date: 20230331
  Transmission Date: 20230418
  Serious: Yes (Other)
  Sender: FDA-Public Use
  Company Number: US-TEVA-2022-US-2067963

PATIENT
  Age: 24 Year
  Sex: Female

DRUGS (3)
  1. CLARAVIS [Suspect]
     Active Substance: ISOTRETINOIN
     Indication: Product used for unknown indication
     Dosage: 80 MILLIGRAM DAILY;
     Route: 065
     Dates: start: 20211016, end: 202204
  2. CLARAVIS [Suspect]
     Active Substance: ISOTRETINOIN
     Route: 065
  3. CLARAVIS [Suspect]
     Active Substance: ISOTRETINOIN
     Route: 065

REACTIONS (1)
  - Unintended pregnancy [Unknown]

NARRATIVE: CASE EVENT DATE: 20220511
